FAERS Safety Report 14534889 (Version 1)
Quarter: 2018Q1

REPORT INFORMATION
  Report Type: Spontaneous
  Country: PL (occurrence: PL)
  Receive Date: 20180215
  Receipt Date: 20180215
  Transmission Date: 20180509
  Serious: Yes (Hospitalization, Other)
  Sender: FDA-Public Use
  Company Number: PL-GLAXOSMITHKLINE-PL2018019150

PATIENT
  Age: 39 Year
  Sex: Male

DRUGS (9)
  1. PROPAFENONE. [Suspect]
     Active Substance: PROPAFENONE
     Indication: ATRIAL FIBRILLATION
     Dosage: 450 MILLIGRAM DAILY; METOPROLOL SUCCINATE 25 MG ONCE DAILY IN COMBINATION WITH PROPAFENONE DOSE OF 1
     Route: 065
  2. ACETYLSALICYLIC ACID [Suspect]
     Active Substance: ASPIRIN
     Indication: ANTICOAGULANT THERAPY
     Dosage: 150 MG, QD
     Route: 065
  3. AMLODIPINE BESILATE/LISINOPRIL [Suspect]
     Active Substance: AMLODIPINE BESYLATE\LISINOPRIL
     Indication: ATRIAL FIBRILLATION
     Dosage: ONE TABLET IN THE MORNING AND HALF TABLET IN EVENING
     Route: 065
  4. PROPAFENONE. [Suspect]
     Active Substance: PROPAFENONE
     Dosage: 450 MG, QD
     Route: 065
  5. ATORVASTATIN [Suspect]
     Active Substance: ATORVASTATIN
     Indication: ATRIAL FIBRILLATION
     Dosage: 1 DF, QD EVENING
     Route: 065
  6. BISOPROLOL [Suspect]
     Active Substance: BISOPROLOL
     Indication: ATRIAL FIBRILLATION
     Dosage: 1 DF, QD
     Route: 065
  7. METOPROLOL. [Suspect]
     Active Substance: METOPROLOL
     Indication: ATRIAL FIBRILLATION
     Dosage: 25 MILLIGRAM DAILY; METOPROLOL SUCCINATE 25 MG ONCE DAILY IN COMBINATION WITH PROPAFENONE DOSE OF 15
     Route: 065
  8. METOPROLOL. [Suspect]
     Active Substance: METOPROLOL
     Indication: ARRHYTHMIA
     Dosage: 25 MG, QD
     Route: 065
  9. DABIGATRAN [Suspect]
     Active Substance: DABIGATRAN
     Indication: ATRIAL FIBRILLATION
     Dosage: BID FOR 8 WEEKS
     Route: 065

REACTIONS (9)
  - Muscular weakness [Recovered/Resolved]
  - Transient ischaemic attack [Unknown]
  - Facial asymmetry [Recovered/Resolved]
  - Heart rate irregular [Unknown]
  - Epistaxis [Recovered/Resolved]
  - Speech disorder [Recovered/Resolved]
  - Fatigue [Unknown]
  - Dyspnoea [Unknown]
  - Drug ineffective [Unknown]
